FAERS Safety Report 17668449 (Version 2)
Quarter: 2020Q2

REPORT INFORMATION
  Report Type: Spontaneous
  Country: CA (occurrence: CA)
  Receive Date: 20200415
  Receipt Date: 20200504
  Transmission Date: 20200713
  Serious: Yes (Hospitalization, Other)
  Sender: FDA-Public Use
  Company Number: CA-BRISTOL-MYERS SQUIBB COMPANY-BMS-2020-029662

PATIENT
  Age: 89 Year
  Sex: Female
  Weight: 46 kg

DRUGS (3)
  1. ELIQUIS [Suspect]
     Active Substance: APIXABAN
     Indication: PULMONARY THROMBOSIS
     Dosage: 5 MILLIGRAM, BID
     Route: 048
     Dates: start: 20200317, end: 20200424
  2. PROBIOTIC [BIFIDOBACTERIUM LACTIS] [Concomitant]
     Active Substance: BIFIDOBACTERIUM ANIMALIS LACTIS
     Indication: PRODUCT USED FOR UNKNOWN INDICATION
     Dosage: UNK
     Route: 065
  3. ELTROXIN [Interacting]
     Active Substance: LEVOTHYROXINE
     Indication: HYPOTHYROIDISM
     Dosage: UNK
     Route: 065
     Dates: start: 1970

REACTIONS (4)
  - Adverse drug reaction [Unknown]
  - Choking [Not Recovered/Not Resolved]
  - Cough [Not Recovered/Not Resolved]
  - Drug interaction [Unknown]

NARRATIVE: CASE EVENT DATE: 20200401
